FAERS Safety Report 26113708 (Version 1)
Quarter: 2025Q4

REPORT INFORMATION
  Report Type: Spontaneous
  Country: US (occurrence: US)
  Receive Date: 20251202
  Receipt Date: 20251202
  Transmission Date: 20260117
  Serious: No
  Sender: MERCK SHARP & DOHME LLC
  Company Number: US-009507513-2346803

PATIENT
  Age: 47 Year
  Sex: Male

DRUGS (2)
  1. POSACONAZOLE [Suspect]
     Active Substance: POSACONAZOLE
     Indication: Histoplasmosis
  2. NYSTATIN [Concomitant]
     Active Substance: NYSTATIN
     Indication: Evidence based treatment
     Route: 048

REACTIONS (1)
  - Product use in unapproved indication [Unknown]
